FAERS Safety Report 25544929 (Version 1)
Quarter: 2025Q3

REPORT INFORMATION
  Report Type: Report from Study
  Country: CA (occurrence: CA)
  Receive Date: 20250711
  Receipt Date: 20250711
  Transmission Date: 20251021
  Serious: Yes (Hospitalization)
  Sender: ABBVIE
  Company Number: CA-ABBVIE-6363457

PATIENT
  Age: 49 Year
  Sex: Male

DRUGS (1)
  1. SKYRIZI [Suspect]
     Active Substance: RISANKIZUMAB-RZAA
     Indication: Crohn^s disease
     Dosage: SKYRIZI OBI 360MG/2.4ML
     Route: 058
     Dates: start: 20240725

REACTIONS (7)
  - Intestinal obstruction [Recovering/Resolving]
  - Small intestinal obstruction [Unknown]
  - Intestinal steatosis [Unknown]
  - Volvulus of small bowel [Recovering/Resolving]
  - Inflammation [Unknown]
  - Abdominal pain [Recovering/Resolving]
  - Flatulence [Unknown]

NARRATIVE: CASE EVENT DATE: 20250701
